FAERS Safety Report 7149358-3 (Version None)
Quarter: 2010Q4

REPORT INFORMATION
  Report Type: 
  Country: None (occurrence: None)
  Receive Date: 20101209
  Receipt Date: 20100928
  Transmission Date: 20110411
  Serious: No
  Sender: FDA-Public Use
  Company Number: US-KINGPHARMUSA00001-K201001381

PATIENT

DRUGS (1)
  1. EMBEDA [Suspect]
     Dosage: UNK

REACTIONS (3)
  - DRUG INTOLERANCE [None]
  - GASTROINTESTINAL DISORDER [None]
  - NAUSEA [None]
